FAERS Safety Report 4918572-7 (Version None)
Quarter: 2006Q1

REPORT INFORMATION
  Report Type: 
  Country: None (occurrence: None)
  Receive Date: 20060221
  Receipt Date: 20060221
  Transmission Date: 20060701
  Serious: Yes (Disabling)
  Sender: FDA-Public Use
  Company Number: None

PATIENT
  Age: 14 Month
  Sex: Male
  Weight: 12.1337 kg

DRUGS (1)
  1. OMNICEF [Suspect]
     Indication: ACUTE SINUSITIS
     Dosage: PO
     Route: 048

REACTIONS (1)
  - INTERCEPTED MEDICATION ERROR [None]
